FAERS Safety Report 18166443 (Version 2)
Quarter: 2020Q3

REPORT INFORMATION
  Report Type: Spontaneous
  Country: US (occurrence: US)
  Receive Date: 20200819
  Receipt Date: 20200914
  Transmission Date: 20201103
  Serious: Yes (Hospitalization)
  Sender: FDA-Public Use
  Company Number: US-KARYOPHARM-2020KPT000865

PATIENT

DRUGS (1)
  1. XPOVIO [Suspect]
     Active Substance: SELINEXOR
     Indication: PLASMA CELL MYELOMA
     Dosage: 60 MG, WEEKLY
     Route: 048
     Dates: start: 20200727, end: 202008

REACTIONS (6)
  - Skull fracture [Unknown]
  - Diarrhoea [Unknown]
  - Anxiety [Unknown]
  - Fall [Unknown]
  - Prescribed underdose [Unknown]
  - Cough [Unknown]

NARRATIVE: CASE EVENT DATE: 202007
